FAERS Safety Report 7128571-5 (Version None)
Quarter: 2010Q4

REPORT INFORMATION
  Report Type: 
  Country: None (occurrence: None)
  Receive Date: 20101115
  Receipt Date: 20101108
  Transmission Date: 20110411
  Serious: Yes (Hospitalization)
  Sender: FDA-Public Use
  Company Number: B0683872A

PATIENT
  Age: 3 Year
  Sex: Male

DRUGS (16)
  1. LAMIVUDINE-HIV (FORMULATION UNKNOWN) (GENERIC) (LAMIVUDINE-HIV) [Suspect]
     Indication: HIV INFECTION
     Dosage: 50 MG / TWICE PER DAY /
  2. STAVUDINE [Suspect]
     Indication: HIV INFECTION
     Dosage: 15 MG / TWICE PER DAY /
  3. EFAVIRENZ [Suspect]
     Indication: HIV INFECTION
     Dosage: 200 MG / PER DAY /
  4. PREDNISONE [Concomitant]
  5. RIFAMPICIN [Concomitant]
  6. ISONIAZID [Concomitant]
  7. PYRAZINAMIDE [Concomitant]
  8. ETHAMBUTOL HYDROCHLORIDE [Concomitant]
  9. ETHIONAMIDE [Concomitant]
  10. SPIRONOLACTONE [Concomitant]
  11. NYSTATIN [Concomitant]
  12. VITAMIN TAB [Concomitant]
  13. MINERAL TAB [Concomitant]
  14. ANTIBIOTICS [Concomitant]
  15. WHOLE BLOOD [Concomitant]
  16. COTRIM [Concomitant]

REACTIONS (6)
  - ASCITES [None]
  - IMMUNE RECONSTITUTION SYNDROME [None]
  - LYMPHADENOPATHY [None]
  - PERICARDIAL EFFUSION [None]
  - PLEURAL EFFUSION [None]
  - TUBERCULOSIS [None]
